FAERS Safety Report 6835537-9 (Version None)
Quarter: 2010Q3

REPORT INFORMATION
  Report Type: 
  Country: None (occurrence: None)
  Receive Date: 20100713
  Receipt Date: 20100630
  Transmission Date: 20110219
  Serious: Yes (Other)
  Sender: FDA-Public Use
  Company Number: PHHY2010BR43207

PATIENT
  Sex: Male
  Weight: 71 kg

DRUGS (6)
  1. ENABLEX [Suspect]
     Indication: URINARY INCONTINENCE
     Dosage: 7.5 MG DAILY
     Route: 048
  2. ENABLEX [Suspect]
     Dosage: UNK
     Route: 048
     Dates: start: 20100622
  3. GLUCOVANCE [Concomitant]
     Indication: DIABETES MELLITUS
     Dosage: 1 DF, TID
     Route: 048
  4. GLUCOBAY [Concomitant]
     Indication: DIABETES MELLITUS
     Dosage: 50 MG, TID
     Route: 048
  5. LANTUS [Concomitant]
     Indication: DIABETES MELLITUS
     Dosage: 16 IU AT NIGHT
     Route: 058
     Dates: start: 20070101
  6. ASPIRIN [Concomitant]
     Indication: ANTICOAGULANT THERAPY
     Dosage: 100 MG, QD
     Route: 048
     Dates: start: 20020101

REACTIONS (4)
  - GASTROINTESTINAL TUBE INSERTION [None]
  - MASS EXCISION [None]
  - NEOPLASM MALIGNANT [None]
  - WRONG TECHNIQUE IN DRUG USAGE PROCESS [None]
